FAERS Safety Report 5534522-7 (Version None)
Quarter: 2007Q4

REPORT INFORMATION
  Report Type: 
  Country: None (occurrence: None)
  Receive Date: 20071204
  Receipt Date: 20071204
  Transmission Date: 20080405
  Serious: Yes (Hospitalization, Other)
  Sender: FDA-Public Use
  Company Number: None

PATIENT
  Age: 55 Year
  Sex: Male
  Weight: 99.7913 kg

DRUGS (2)
  1. HYDROCODONE BITARTRATE [Suspect]
     Indication: SENSORY DISTURBANCE
     Dosage: ONCE PO
     Route: 048
     Dates: start: 20070721, end: 20070721
  2. BACLOFEN [Suspect]
     Indication: DRUG THERAPY
     Dosage: ONCE PO
     Route: 048
     Dates: start: 20070721, end: 20070721

REACTIONS (9)
  - BRAIN SCAN ABNORMAL [None]
  - CONSTIPATION [None]
  - DYSGEUSIA [None]
  - HYPERHIDROSIS [None]
  - IMMOBILE [None]
  - MOVEMENT DISORDER [None]
  - RESPIRATORY DEPRESSION [None]
  - SOMNOLENCE [None]
  - URTICARIA [None]
